FAERS Safety Report 4899865-9 (Version None)
Quarter: 2006Q1

REPORT INFORMATION
  Report Type: 
  Country: None (occurrence: None)
  Receive Date: 20060118
  Receipt Date: 20050722
  Transmission Date: 20060701
  Serious: No
  Sender: FDA-Public Use
  Company Number: 2005001408

PATIENT
  Sex: Female
  Weight: 56.6996 kg

DRUGS (7)
  1. TARCEVA [Suspect]
     Indication: NON-SMALL CELL LUNG CANCER
     Dosage: 150 MG (QD), ORAL
     Route: 048
  2. DEXAMETHASONE TAB [Concomitant]
  3. OXYCONTIN [Concomitant]
  4. LISINOPRIL [Concomitant]
  5. NEURONTIN [Concomitant]
  6. ELAVIL [Concomitant]
  7. PRILOSEC [Concomitant]

REACTIONS (3)
  - ANOREXIA [None]
  - RASH [None]
  - SWELLING FACE [None]
